FAERS Safety Report 10166069 (Version 2)
Quarter: 2014Q2

REPORT INFORMATION
  Report Type: Spontaneous
  Country: US (occurrence: US)
  Receive Date: 20140512
  Receipt Date: 20140623
  Transmission Date: 20141212
  Serious: Yes (Hospitalization, Other)
  Sender: FDA-Public Use
  Company Number: US-PFIZER INC-2014125066

PATIENT
  Age: 15 Year
  Sex: Male
  Weight: 44.44 kg

DRUGS (8)
  1. FLAGYL [Suspect]
     Indication: ANTIBIOTIC THERAPY
     Dosage: 100 MG, 3X/DAY (IN 8  HOUR)
     Route: 042
     Dates: start: 201403
  2. CIPROFLOXACIN [Suspect]
     Indication: ANTIBIOTIC THERAPY
     Dosage: 400 MG, 2X/DAY
     Route: 042
     Dates: start: 201403
  3. BUDESONIDE [Suspect]
     Indication: INFECTION
     Dosage: 3 MG, 3X/DAY (3 IN 1 DAY)
     Route: 048
     Dates: start: 201403
  4. REMICADE [Suspect]
     Indication: CROHN^S DISEASE
     Dosage: UNK
     Route: 042
     Dates: start: 201312
  5. REMICADE [Suspect]
     Dosage: UNK
     Dates: start: 201404
  6. FERROUS SULFATE [Concomitant]
     Indication: CROHN^S DISEASE
     Dosage: 325 MG, 3X/DAY (3 IN 1 DAY)
     Route: 048
  7. ASACOL [Concomitant]
     Indication: CROHN^S DISEASE
     Dosage: 800 MG, 4X/DAY
     Route: 048
  8. OLANZAPINE [Concomitant]
     Dosage: UNK
     Dates: start: 2014, end: 2014

REACTIONS (4)
  - Crohn^s disease [Recovering/Resolving]
  - Psychotic disorder [Unknown]
  - Gastrointestinal infection [Not Recovered/Not Resolved]
  - Haemoglobin decreased [Recovering/Resolving]
